FAERS Safety Report 8382648-5 (Version None)
Quarter: 2012Q2

REPORT INFORMATION
  Report Type: 
  Country: None (occurrence: None)
  Receive Date: 20120524
  Receipt Date: 20120516
  Transmission Date: 20120825
  Serious: Yes (Other)
  Sender: FDA-Public Use
  Company Number: US-US-EMD SERONO, INC.-7133723

PATIENT
  Sex: Female

DRUGS (3)
  1. SAIZEN [Suspect]
     Indication: BODY HEIGHT BELOW NORMAL
     Route: 058
     Dates: start: 20110201
  2. UNSPECIFIED MEDICAL TREATMENT [Concomitant]
     Indication: ATTENTION DEFICIT/HYPERACTIVITY DISORDER
  3. SAIZEN [Suspect]
     Dates: end: 20111201

REACTIONS (1)
  - CONVULSION [None]
